FAERS Safety Report 10358425 (Version 2)
Quarter: 2014Q3

REPORT INFORMATION
  Report Type: Report from Study
  Country: CO (occurrence: CO)
  Receive Date: 20140801
  Receipt Date: 20140801
  Transmission Date: 20150326
  Serious: Yes (Congenital Anomaly)
  Sender: FDA-Public Use
  Company Number: CO-ABBVIE-14P-036-1217991-00

PATIENT
  Sex: Male
  Weight: 2.57 kg

DRUGS (1)
  1. HUMIRA [Suspect]
     Active Substance: ADALIMUMAB
     Indication: MATERNAL EXPOSURE TIMING UNSPECIFIED
     Route: 064

REACTIONS (3)
  - Congenital tricuspid valve atresia [Unknown]
  - Ventricular hypoplasia [Unknown]
  - Foetal exposure during pregnancy [Unknown]
